FAERS Safety Report 6519513-1 (Version None)
Quarter: 2009Q4

REPORT INFORMATION
  Report Type: 
  Country: None (occurrence: None)
  Receive Date: 20091228
  Receipt Date: 20091216
  Transmission Date: 20100525
  Serious: Yes (Hospitalization)
  Sender: FDA-Public Use
  Company Number: US-ALEXION-A200901056

PATIENT
  Sex: Male

DRUGS (3)
  1. SOLIRIS 300MG [Suspect]
     Indication: PAROXYSMAL NOCTURNAL HAEMOGLOBINURIA
     Dosage: 600 MG, QW X4
     Route: 042
     Dates: start: 20090918, end: 20091009
  2. SOLIRIS 300MG [Suspect]
     Dosage: 900 MG, Q2W
     Route: 042
     Dates: start: 20091016, end: 20091101
  3. SOLIRIS 300MG [Suspect]
     Dosage: 600 MG, RE-INDUCTION DOSE
     Route: 042
     Dates: start: 20091216

REACTIONS (5)
  - CELLULITIS [None]
  - CHILLS [None]
  - ERYTHEMA [None]
  - PAIN IN EXTREMITY [None]
  - PYREXIA [None]
